FAERS Safety Report 8450050-3 (Version None)
Quarter: 2012Q2

REPORT INFORMATION
  Report Type: 
  Country: None (occurrence: None)
  Receive Date: 20120620
  Receipt Date: 20120611
  Transmission Date: 20120825
  Serious: Yes (Other)
  Sender: FDA-Public Use
  Company Number: DE-JNJFOC-20120106488

PATIENT
  Sex: Male
  Weight: 80 kg

DRUGS (3)
  1. STELARA [Suspect]
     Indication: PSORIASIS
     Route: 058
     Dates: start: 20110220
  2. STELARA [Suspect]
     Route: 058
     Dates: start: 20100222, end: 20100810
  3. STEROIDS NOS [Concomitant]
     Route: 061
     Dates: start: 20100201

REACTIONS (4)
  - GENERALISED ERYTHEMA [None]
  - DRUG INEFFECTIVE [None]
  - PANIC ATTACK [None]
  - HEPATIC ENZYME INCREASED [None]
